FAERS Safety Report 14325648 (Version 2)
Quarter: 2018Q1

REPORT INFORMATION
  Report Type: Spontaneous
  Country: ES (occurrence: ES)
  Receive Date: 20171226
  Receipt Date: 20180107
  Transmission Date: 20180509
  Serious: Yes (Other)
  Sender: FDA-Public Use
  Company Number: ES-TEVA-2017-ES-836077

PATIENT
  Age: 75 Year
  Sex: Male

DRUGS (1)
  1. TACROLIMUS. [Suspect]
     Active Substance: TACROLIMUS
     Route: 065

REACTIONS (5)
  - Blindness unilateral [Unknown]
  - Papilloedema [Unknown]
  - Optic neuropathy [Unknown]
  - Splinter haemorrhages [Unknown]
  - Optic atrophy [Unknown]
